FAERS Safety Report 19471686 (Version 2)
Quarter: 2021Q3

REPORT INFORMATION
  Report Type: Spontaneous
  Country: JP (occurrence: JP)
  Receive Date: 20210628
  Receipt Date: 20210722
  Transmission Date: 20211014
  Serious: Yes (Other)
  Sender: FDA-Public Use
  Company Number: JP-JNJFOC-20210661496

PATIENT
  Age: 80 Year
  Sex: Male
  Weight: 47 kg

DRUGS (10)
  1. EPLERENONE. [Concomitant]
     Active Substance: EPLERENONE
     Indication: HYPERTENSION
     Dosage: DAILY DOSE 50MG
     Route: 048
     Dates: start: 20150912
  2. DIGOSIN [Concomitant]
     Active Substance: DIGOXIN
     Indication: CARDIAC FAILURE
     Dosage: DAILY DOSE 0.0625MG
     Route: 048
     Dates: start: 20150807, end: 20210221
  3. DONEPEZIL HYDROCHLORIDE OD KUNIHIRO [Concomitant]
     Indication: DEMENTIA
     Dosage: DAILY DOSE 5MG
     Route: 048
     Dates: start: 20180518
  4. DIART [AZOSEMIDE] [Concomitant]
     Indication: CARDIAC FAILURE
     Dosage: DAILY DOSE 15MG
     Route: 048
     Dates: start: 20150807, end: 20210523
  5. TANATRIL [Concomitant]
     Active Substance: IMIDAPRIL
     Indication: HYPERTENSION
     Dosage: DAILY DOSE 5MG
     Route: 048
     Dates: start: 2015
  6. BISOPROLOL [Concomitant]
     Active Substance: BISOPROLOL
     Indication: ATRIAL FIBRILLATION
  7. XARELTO [Suspect]
     Active Substance: RIVAROXABAN
     Indication: ATRIAL FIBRILLATION
     Dosage: DAILY DOSE 10MG
     Route: 048
     Dates: start: 2015, end: 20210624
  8. AMLODIPINE [Concomitant]
     Active Substance: AMLODIPINE BESYLATE
     Indication: HYPERTENSION
     Dosage: DAILY DOSE 2.5MG
     Route: 048
     Dates: start: 2015
  9. BISOPROLOL [Concomitant]
     Active Substance: BISOPROLOL
     Indication: CARDIAC FAILURE
     Dosage: DAILY DOSE 1.25MG
     Route: 048
     Dates: start: 20150714
  10. EPLERENONE. [Concomitant]
     Active Substance: EPLERENONE
     Indication: CARDIAC FAILURE

REACTIONS (6)
  - Brain oedema [Recovering/Resolving]
  - Quadriparesis [Recovering/Resolving]
  - Dyslalia [Recovering/Resolving]
  - Dysarthria [Recovering/Resolving]
  - Drug ineffective [Unknown]
  - Embolic stroke [Recovering/Resolving]

NARRATIVE: CASE EVENT DATE: 20210615
